FAERS Safety Report 5502080-9 (Version None)
Quarter: 2007Q4

REPORT INFORMATION
  Report Type: 
  Country: None (occurrence: None)
  Receive Date: 20071030
  Receipt Date: 20071022
  Transmission Date: 20080405
  Serious: Yes (Hospitalization, Other)
  Sender: FDA-Public Use
  Company Number: US-ELI_LILLY_AND_COMPANY-US200710000077

PATIENT
  Age: 70 Year
  Sex: Male

DRUGS (20)
  1. CYMBALTA [Suspect]
     Indication: NEURALGIA
     Dosage: 30 MG, UNK
     Dates: start: 20070301
  2. CYMBALTA [Suspect]
     Dosage: 40 MG, DAILY (1/D)
  3. CYMBALTA [Suspect]
     Dosage: 30 MG, UNK
  4. CYMBALTA [Suspect]
     Dosage: 60 MG, DAILY (1/D)
  5. CYMBALTA [Suspect]
     Dosage: 40 MG, DAILY (1/D)
  6. CYMBALTA [Suspect]
     Dosage: 60 MG, DAILY (1/D)
  7. OXYCODONE HCL [Concomitant]
     Indication: PAIN
     Dosage: 5 MG, 2-3 PER DAY
  8. DIURETICS [Concomitant]
  9. PROTONIX [Concomitant]
  10. FLOMAX [Concomitant]
     Indication: PROSTATIC DISORDER
     Dosage: 0.4 MG, DAILY (1/D)
  11. NEURONTIN [Concomitant]
     Indication: NEUROPATHY
     Dosage: 3-4 PER DAY
  12. ALCOHOL [Concomitant]
     Dosage: 1 D/F, WEEKLY (1/W)
  13. AMILORIDE HYDROCHLORIDE [Concomitant]
     Dosage: 5/50 MG
  14. LORAZEPAM [Concomitant]
     Dosage: 1-2 PER DAY
  15. POTASSIUM CHLORIDE [Concomitant]
     Dosage: 1 D/F, DAILY (1/D)
  16. AMBIEN [Concomitant]
     Dosage: UNK, AS NEEDED
  17. COLCHICINE [Concomitant]
     Dosage: UNK, AS NEEDED
  18. INDOCIN [Concomitant]
     Dosage: UNK, AS NEEDED
  19. ZELNORM [Concomitant]
     Dosage: 0.5 D/F, DAILY (1/D)
  20. LUMIGAN [Concomitant]

REACTIONS (13)
  - DISORIENTATION [None]
  - DIZZINESS [None]
  - EXTRASYSTOLES [None]
  - FATIGUE [None]
  - HEART RATE DECREASED [None]
  - HEART RATE INCREASED [None]
  - HEART RATE IRREGULAR [None]
  - LOSS OF CONSCIOUSNESS [None]
  - MENTAL IMPAIRMENT [None]
  - ORTHOSTATIC HYPOTENSION [None]
  - SICK SINUS SYNDROME [None]
  - SUPRAVENTRICULAR EXTRASYSTOLES [None]
  - THINKING ABNORMAL [None]
